FAERS Safety Report 14944427 (Version 1)
Quarter: 2018Q2

REPORT INFORMATION
  Report Type: Spontaneous
  Country: FR (occurrence: FR)
  Receive Date: 20180529
  Receipt Date: 20180529
  Transmission Date: 20180711
  Serious: Yes (Other)
  Sender: FDA-Public Use
  Company Number: FR-MERCK KGAA-2048552

PATIENT
  Age: 60 Year
  Sex: Female

DRUGS (1)
  1. NOVOTHYROX [Suspect]
     Active Substance: LEVOTHYROXINE SODIUM
     Indication: HYPOTHYROIDISM

REACTIONS (28)
  - Eating disorder [Recovered/Resolved]
  - Monocyte count increased [None]
  - Blood glucose increased [None]
  - Thyroxine free decreased [Recovered/Resolved]
  - Constipation [Recovered/Resolved]
  - Myalgia [Recovered/Resolved]
  - Loss of personal independence in daily activities [None]
  - Morose [None]
  - Blood thyroid stimulating hormone increased [None]
  - Pain [Recovered/Resolved]
  - Irritability [None]
  - Blood cholesterol decreased [None]
  - Epistaxis [Recovered/Resolved]
  - Fatigue [None]
  - Decreased interest [None]
  - Blood creatinine decreased [None]
  - Mood swings [None]
  - Alopecia [Recovered/Resolved]
  - Hot flush [Recovered/Resolved]
  - Blood creatine phosphokinase increased [None]
  - Mean cell haemoglobin increased [None]
  - Tri-iodothyronine free decreased [Recovered/Resolved]
  - Blood thyroid stimulating hormone decreased [Recovered/Resolved]
  - Vomiting [Recovered/Resolved]
  - Abdominal pain upper [Recovered/Resolved]
  - Gastrointestinal disorder [Recovered/Resolved]
  - Mean cell volume increased [None]
  - Aspartate aminotransferase decreased [None]

NARRATIVE: CASE EVENT DATE: 20170427
